FAERS Safety Report 4370293-8 (Version None)
Quarter: 2004Q2

REPORT INFORMATION
  Report Type: 
  Country: None (occurrence: None)
  Receive Date: 20040603
  Receipt Date: 20040302
  Transmission Date: 20050107
  Serious: No
  Sender: FDA-Public Use
  Company Number: US-BRISTOL-MYERS SQUIBB COMPANY-12524112

PATIENT
  Age: 33 Year
  Sex: Female

DRUGS (1)
  1. ABILIFY [Suspect]
     Indication: PSYCHOTIC DISORDER
     Dosage: DOSE REDUCED TO 10 MG/DAY, THEN 5 MG/DAY
     Route: 048

REACTIONS (2)
  - DYSKINESIA [None]
  - MOVEMENT DISORDER [None]
